FAERS Safety Report 24251295 (Version 1)
Quarter: 2024Q3

REPORT INFORMATION
  Report Type: Report from Study
  Country: US (occurrence: US)
  Receive Date: 20240826
  Receipt Date: 20240826
  Transmission Date: 20241017
  Serious: Yes (Other)
  Sender: GILEAD
  Company Number: US-GILEAD-2024-0685228

PATIENT
  Age: 33 Year
  Sex: Male

DRUGS (2)
  1. BREXUCABTAGENE AUTOLEUCEL [Suspect]
     Active Substance: BREXUCABTAGENE AUTOLEUCEL
     Indication: Acute lymphocytic leukaemia recurrent
     Route: 042
  2. ASCIMINIB [Concomitant]
     Active Substance: ASCIMINIB
     Dosage: 40 MG, BID

REACTIONS (5)
  - B-cell aplasia [Unknown]
  - Hypogammaglobulinaemia [Unknown]
  - Cytokine release syndrome [Unknown]
  - Immune effector cell-associated neurotoxicity syndrome [Unknown]
  - Neutropenia [Recovered/Resolved]
